FAERS Safety Report 7622548-9 (Version None)
Quarter: 2011Q3

REPORT INFORMATION
  Report Type: 
  Country: None (occurrence: None)
  Receive Date: 20110701
  Receipt Date: 20101001
  Transmission Date: 20111222
  Serious: Yes (Hospitalization)
  Sender: FDA-Public Use
  Company Number: 7019998

PATIENT
  Age: 18 Year
  Sex: Female

DRUGS (2)
  1. REBIF [Suspect]
     Indication: MULTIPLE SCLEROSIS
     Dates: start: 20081113, end: 20100929
  2. GAMUNEX [Concomitant]

REACTIONS (2)
  - CONSTIPATION [None]
  - MULTIPLE SCLEROSIS RELAPSE [None]
